FAERS Safety Report 25720780 (Version 1)
Quarter: 2025Q3

REPORT INFORMATION
  Report Type: Spontaneous
  Country: EU (occurrence: EU)
  Receive Date: 20250825
  Receipt Date: 20250825
  Transmission Date: 20251021
  Serious: Yes (Hospitalization, Disabling, Other)
  Sender: CELLTRION
  Company Number: EU-CELLTRION INC.-2025GR024009

PATIENT

DRUGS (4)
  1. ADALIMUMAB [Suspect]
     Active Substance: ADALIMUMAB
     Indication: Psoriatic arthropathy
  2. ADALIMUMAB [Suspect]
     Active Substance: ADALIMUMAB
     Indication: Psoriasis
     Route: 065
  3. ADALIMUMAB [Suspect]
     Active Substance: ADALIMUMAB
     Indication: Immunosuppression
  4. ACITRETIN [Concomitant]
     Active Substance: ACITRETIN
     Indication: Psoriatic arthropathy
     Route: 065

REACTIONS (7)
  - Haemophagocytic lymphohistiocytosis [Recovering/Resolving]
  - Disseminated mycobacterium avium complex infection [Recovered/Resolved]
  - Tuberculosis of central nervous system [Recovered/Resolved]
  - Tuberculosis [Recovered/Resolved]
  - Mycobacterium avium complex infection [Recovered/Resolved]
  - Meningitis tuberculous [Recovered/Resolved]
  - Intentional product use issue [Unknown]
